FAERS Safety Report 8619890-1 (Version None)
Quarter: 2012Q3

REPORT INFORMATION
  Report Type: 
  Country: None (occurrence: None)
  Receive Date: 20120824
  Receipt Date: 20120705
  Transmission Date: 20120928
  Serious: No
  Sender: FDA-Public Use
  Company Number: US-GLAXOSMITHKLINE-A0983405A

PATIENT
  Age: 61 Year
  Sex: Male
  Weight: 122.3 kg

DRUGS (17)
  1. ACETAMINOPHEN [Concomitant]
     Route: 048
  2. METHYLPREDNISOLONE SODIUM SUCCINATE [Concomitant]
  3. GLUCOSAMINE SULFATE [Concomitant]
     Dosage: 1000MG IN THE MORNING
     Route: 048
  4. MULTI-VITAMIN [Concomitant]
     Dosage: 1TAB PER DAY
     Route: 048
  5. LANTUS [Concomitant]
     Dosage: 40UNIT AT NIGHT
     Route: 058
  6. ASPIRIN [Concomitant]
     Dosage: 81MG PER DAY
     Route: 048
  7. LISINOPRIL [Concomitant]
     Dosage: 10MG PER DAY
     Route: 048
  8. ATENOLOL [Concomitant]
     Dosage: 100MG PER DAY
     Route: 048
  9. CALCIUM [Concomitant]
     Dosage: 500MG PER DAY
     Route: 048
  10. ASCORBIC ACID [Concomitant]
     Dosage: 250MG PER DAY
     Route: 048
  11. VITAMIN D [Concomitant]
     Dosage: 2000UNIT PER DAY
     Route: 048
  12. ARZERRA [Suspect]
     Indication: CHRONIC LYMPHOCYTIC LEUKAEMIA
     Route: 042
     Dates: start: 20120619
  13. DIPHENHYDRAMINE HCL [Concomitant]
  14. JANUVIA [Concomitant]
     Dosage: 100MG ALTERNATE DAYS
     Route: 048
  15. GLIPIZIDE [Concomitant]
     Dosage: 10MG PER DAY
     Route: 048
  16. XANAX [Concomitant]
     Indication: ANXIETY
     Dosage: .25MG AS REQUIRED
     Route: 048
  17. MSM + GLUCOSAMINE [Concomitant]
     Dosage: 2TAB PER DAY
     Route: 048

REACTIONS (2)
  - DISEASE PROGRESSION [None]
  - WHITE BLOOD CELL COUNT INCREASED [None]
